FAERS Safety Report 6437980-9 (Version None)
Quarter: 2009Q4

REPORT INFORMATION
  Report Type: 
  Country: None (occurrence: None)
  Receive Date: 20091109
  Receipt Date: 20091030
  Transmission Date: 20100525
  Serious: Yes (Other)
  Sender: FDA-Public Use
  Company Number: SPV1-2009-02188

PATIENT
  Sex: 0

DRUGS (1)
  1. FOSRENOL [Suspect]
     Dosage: ORAL
     Route: 048

REACTIONS (1)
  - TOXIC SKIN ERUPTION [None]
